FAERS Safety Report 7456095-4 (Version None)
Quarter: 2011Q2

REPORT INFORMATION
  Report Type: 
  Country: None (occurrence: None)
  Receive Date: 20110503
  Receipt Date: 20110428
  Transmission Date: 20111010
  Serious: Yes (Other)
  Sender: FDA-Public Use
  Company Number: US-PFIZER INC-2011092866

PATIENT
  Sex: Male
  Weight: 99.773 kg

DRUGS (1)
  1. VIAGRA [Suspect]
     Indication: ERECTILE DYSFUNCTION
     Dosage: 250 MG, AS NEEDED
     Dates: start: 20110428

REACTIONS (3)
  - ERECTION INCREASED [None]
  - PENILE PAIN [None]
  - INCORRECT DOSE ADMINISTERED [None]
